FAERS Safety Report 8695123 (Version 2)
Quarter: 2013Q4

REPORT INFORMATION
  Report Type: Spontaneous
  Country: US (occurrence: US)
  Receive Date: 20120731
  Receipt Date: 20131101
  Transmission Date: 20140711
  Serious: No
  Sender: FDA-Public Use
  Company Number: US-009507513-1207USA009737

PATIENT
  Sex: Male

DRUGS (4)
  1. VYTORIN [Suspect]
     Dosage: 10-20 MG, QD
     Route: 048
  2. NEURONTIN [Suspect]
     Dosage: 200 MG, BID
     Route: 048
  3. LISINOPRIL [Concomitant]
     Dosage: 5 MG, BID
  4. COREG [Concomitant]
     Dosage: 12.5 MG, BID

REACTIONS (2)
  - Somnolence [Unknown]
  - Muscle spasms [Unknown]
